FAERS Safety Report 21555653 (Version 1)
Quarter: 2022Q4

REPORT INFORMATION
  Report Type: Spontaneous
  Country: DE (occurrence: DE)
  Receive Date: 20221104
  Receipt Date: 20221104
  Transmission Date: 20230113
  Serious: Yes (Other)
  Sender: FDA-Public Use
  Company Number: None

PATIENT
  Age: 39 Year
  Sex: Female
  Weight: 85 kg

DRUGS (2)
  1. SERTRALINE [Interacting]
     Active Substance: SERTRALINE HYDROCHLORIDE
     Indication: Product used for unknown indication
     Dosage: 100 MILLIGRAM, QD
     Route: 065
  2. PREDNISOLONE [Interacting]
     Active Substance: PREDNISOLONE
     Indication: Joint injury
     Dosage: 50 50 40 40 30 30 20 20 MG
     Route: 048
     Dates: start: 20221012, end: 20221019

REACTIONS (7)
  - Suicidal ideation [Recovered/Resolved]
  - Ageusia [Recovered/Resolved]
  - Psychomotor hyperactivity [Recovered/Resolved]
  - Drug interaction [Unknown]
  - Depression [Recovered/Resolved]
  - Decreased appetite [Recovered/Resolved]
  - Insomnia [Recovered/Resolved]

NARRATIVE: CASE EVENT DATE: 20221016
